FAERS Safety Report 8464287-0 (Version None)
Quarter: 2012Q2

REPORT INFORMATION
  Report Type: 
  Country: None (occurrence: None)
  Receive Date: 20120625
  Receipt Date: 20120612
  Transmission Date: 20120825
  Serious: Yes (Hospitalization)
  Sender: FDA-Public Use
  Company Number: US-ALLERGAN-1205136US

PATIENT
  Age: 34 Year
  Sex: Female

DRUGS (9)
  1. ZONISAMIDE [Concomitant]
     Indication: PRODUCT USED FOR UNKNOWN INDICATION
     Dosage: UNK
  2. SYNTHROID [Concomitant]
  3. BOTULINUM TOXIN TYPE A [Suspect]
     Dosage: 155 UNITS, SINGLE
     Route: 030
     Dates: start: 20120110, end: 20120110
  4. INDERAL                            /00030001/ [Concomitant]
     Indication: PRODUCT USED FOR UNKNOWN INDICATION
     Dosage: UNK
  5. BOTULINUM TOXIN TYPE A [Suspect]
     Indication: MIGRAINE
     Dosage: 115 UNITS, SINGLE
     Route: 030
     Dates: start: 20111025, end: 20111025
  6. BACLOFEN [Concomitant]
     Indication: PRODUCT USED FOR UNKNOWN INDICATION
     Dosage: UNK
  7. AMITRIPTYLINE HCL [Concomitant]
  8. CYMBALTA [Concomitant]
  9. ATIVAN [Concomitant]

REACTIONS (7)
  - HYPOTENSION [None]
  - HEART RATE DECREASED [None]
  - INJECTION SITE PAIN [None]
  - INJECTION SITE REACTION [None]
  - URTICARIA [None]
  - LOSS OF CONSCIOUSNESS [None]
  - DIZZINESS [None]
